FAERS Safety Report 24641202 (Version 1)
Quarter: 2024Q4

REPORT INFORMATION
  Report Type: Spontaneous
  Country: CN (occurrence: CN)
  Receive Date: 20241120
  Receipt Date: 20241120
  Transmission Date: 20250115
  Serious: Yes (Death, Other)
  Sender: STRIDES
  Company Number: CN-STRIDES ARCOLAB LIMITED-2024SP014848

PATIENT
  Age: 50 Year
  Sex: Female

DRUGS (11)
  1. ETOPOSIDE [Suspect]
     Active Substance: ETOPOSIDE
     Indication: Cervix carcinoma
     Dosage: UNK, CYCLICAL (RECEIVED 6-CYCLES)
     Route: 065
     Dates: start: 201707, end: 201711
  2. ETOPOSIDE [Suspect]
     Active Substance: ETOPOSIDE
     Dosage: UNK, CYCLICAL (RECEIVED 5-CYCLES)
     Route: 065
     Dates: start: 201906, end: 201910
  3. SINTILIMAB [Suspect]
     Active Substance: SINTILIMAB
     Indication: Cervix carcinoma
     Dosage: 200 MILLIGRAM, CYCLICAL (6 CYCLES) (EVERY 3 WEEKS)
     Route: 065
     Dates: start: 20210726, end: 20211227
  4. CISPLATIN [Suspect]
     Active Substance: CISPLATIN
     Indication: Cervix carcinoma
     Dosage: UNK, CYCLICAL (6 CYCLES)
     Route: 065
     Dates: start: 201707, end: 201711
  5. CISPLATIN [Suspect]
     Active Substance: CISPLATIN
     Dosage: UNK, CYCLICAL (5 CYCLES)
     Route: 065
     Dates: start: 201906, end: 201910
  6. PACLITAXEL [Suspect]
     Active Substance: PACLITAXEL
     Indication: Cervix carcinoma
     Dosage: UNK, CYCLICAL (RECEIVED 4-CYCLES)
     Route: 065
     Dates: start: 202003, end: 202006
  7. CARBOPLATIN [Suspect]
     Active Substance: CARBOPLATIN
     Indication: Cervix carcinoma
     Dosage: UNK, CYCLICAL (RECEIVED 4-CYCLES)
     Route: 065
     Dates: start: 202003, end: 202006
  8. CATEQUENTINIB [Suspect]
     Active Substance: CATEQUENTINIB
     Indication: Cervix carcinoma
     Dosage: UNK
     Route: 065
     Dates: start: 202011
  9. CATEQUENTINIB [Suspect]
     Active Substance: CATEQUENTINIB
     Dosage: UNK
     Route: 065
     Dates: start: 20210726
  10. INSULIN NOS [Suspect]
     Active Substance: INSULIN NOS
     Indication: Diabetic ketoacidosis
     Dosage: UNK
     Route: 065
     Dates: start: 2021
  11. INSULIN NOS [Suspect]
     Active Substance: INSULIN NOS
     Indication: Diabetes mellitus management
     Dosage: UNK
     Route: 065

REACTIONS (6)
  - Death [Fatal]
  - Metastases to lung [Unknown]
  - Metastases to adrenals [Unknown]
  - Metastases to lymph nodes [Unknown]
  - Cervix carcinoma recurrent [Unknown]
  - Drug ineffective for unapproved indication [Unknown]
